FAERS Safety Report 25465201 (Version 1)
Quarter: 2025Q2

REPORT INFORMATION
  Report Type: Report from Study
  Country: US (occurrence: US)
  Receive Date: 20250622
  Receipt Date: 20250622
  Transmission Date: 20250716
  Serious: Yes (Other)
  Sender: ABBVIE
  Company Number: US-ABBVIE-6185710

PATIENT
  Age: 52 Year
  Sex: Female

DRUGS (1)
  1. SKYRIZI [Suspect]
     Active Substance: RISANKIZUMAB-RZAA
     Indication: Crohn^s disease
     Route: 058
     Dates: start: 20241107

REACTIONS (12)
  - Large intestine polyp [Unknown]
  - Pyrexia [Recovered/Resolved]
  - Influenza like illness [Not Recovered/Not Resolved]
  - Decreased appetite [Recovering/Resolving]
  - Faeces soft [Recovering/Resolving]
  - Cough [Not Recovered/Not Resolved]
  - Haematochezia [Unknown]
  - Abdominal tenderness [Unknown]
  - Nausea [Unknown]
  - Colitis [Not Recovered/Not Resolved]
  - Inflammation [Unknown]
  - Abdominal distension [Unknown]

NARRATIVE: CASE EVENT DATE: 20240315
